FAERS Safety Report 16893981 (Version 1)
Quarter: 2019Q4

REPORT INFORMATION
  Report Type: Spontaneous
  Country: US (occurrence: US)
  Receive Date: 20191008
  Receipt Date: 20191008
  Transmission Date: 20200122
  Serious: Yes (Other)
  Sender: FDA-Public Use
  Company Number: US-ENDO PHARMACEUTICALS INC-2019-101921

PATIENT
  Sex: Male

DRUGS (2)
  1. THEO-24 [Suspect]
     Active Substance: THEOPHYLLINE ANHYDROUS
     Dosage: 400 MG, DAILY
     Route: 065
     Dates: start: 201810, end: 20181202
  2. THEO-24 [Suspect]
     Active Substance: THEOPHYLLINE ANHYDROUS
     Indication: ANOSMIA
     Dosage: 200 MG, DAILY
     Route: 065
     Dates: start: 201801, end: 201810

REACTIONS (4)
  - Eructation [Unknown]
  - Ventricular extrasystoles [Not Recovered/Not Resolved]
  - Off label use [Recovered/Resolved]
  - Arrhythmia [Unknown]

NARRATIVE: CASE EVENT DATE: 201801
